FAERS Safety Report 8264252-2 (Version None)
Quarter: 2012Q2

REPORT INFORMATION
  Report Type: 
  Country: None (occurrence: None)
  Receive Date: 20120403
  Receipt Date: 20120323
  Transmission Date: 20120825
  Serious: Yes (Hospitalization, Other)
  Sender: FDA-Public Use
  Company Number: 2012AL000012

PATIENT
  Age: 34 Year
  Sex: Female

DRUGS (1)
  1. FOLOTYN [Suspect]
     Indication: PERIPHERAL T-CELL LYMPHOMA UNSPECIFIED
     Dosage: ;QW; IV
     Route: 042
     Dates: start: 20110518

REACTIONS (11)
  - BLISTER [None]
  - LYMPHADENOPATHY [None]
  - CATHETER SITE CELLULITIS [None]
  - HAEMOGLOBIN DECREASED [None]
  - PLATELET COUNT INCREASED [None]
  - ABDOMINAL PAIN UPPER [None]
  - DEVICE RELATED INFECTION [None]
  - BENIGN NEOPLASM OF THYROID GLAND [None]
  - DRUG DOSE OMISSION [None]
  - BLOOD PRESSURE INCREASED [None]
  - APHTHOUS STOMATITIS [None]
